FAERS Safety Report 7399171-7 (Version None)
Quarter: 2011Q2

REPORT INFORMATION
  Report Type: 
  Country: None (occurrence: None)
  Receive Date: 20110407
  Receipt Date: 20110328
  Transmission Date: 20111010
  Serious: No
  Sender: FDA-Public Use
  Company Number: US-ELI_LILLY_AND_COMPANY-US201101004206

PATIENT
  Sex: Male

DRUGS (7)
  1. MAGNESIUM [Concomitant]
  2. MULTIVITAMIN AND MINERAL [Concomitant]
  3. SAW PALMETTO [Concomitant]
  4. CIALIS [Suspect]
     Indication: BENIGN PROSTATIC HYPERPLASIA
     Dosage: 2.5 MG, DAILY (1/D)
     Dates: start: 20091101, end: 20100201
  5. INSULIN LENTE [Concomitant]
  6. CIALIS [Suspect]
     Dosage: 2.5 MG, DAILY (1/D)
     Dates: start: 20101001
  7. PROSCAR [Concomitant]
     Dosage: UNK

REACTIONS (1)
  - MACULOPATHY [None]
